FAERS Safety Report 8623836 (Version 10)
Quarter: 2021Q2

REPORT INFORMATION
  Report Type: Spontaneous
  Country: US (occurrence: US)
  Receive Date: 20120620
  Receipt Date: 20210408
  Transmission Date: 20210717
  Serious: Yes (Other)
  Sender: FDA-Public Use
  Company Number: US-PFIZER INC-2012144892

PATIENT
  Age: 63 Year
  Sex: Male

DRUGS (10)
  1. NEURONTIN [Suspect]
     Active Substance: GABAPENTIN
     Indication: PAIN
     Dosage: 300 MG, THRICE DAILY
  2. LYRICA [Suspect]
     Active Substance: PREGABALIN
     Indication: PAIN
     Dosage: 225 MG, THRICE DAILY
     Route: 048
  3. NEURONTIN [Suspect]
     Active Substance: GABAPENTIN
     Indication: AUDITORY DISORDER
  4. TRAMADOL HCL [Suspect]
     Active Substance: TRAMADOL HYDROCHLORIDE
     Dosage: UNK
  5. LYRICA [Suspect]
     Active Substance: PREGABALIN
     Indication: NEUROPATHY PERIPHERAL
     Dosage: 75 MG, 3X/DAY(3 CAPSULE BY MOUTH THREE TIMES DAILY)
     Route: 048
  6. NEURONTIN [Suspect]
     Active Substance: GABAPENTIN
     Indication: NEUROPATHY PERIPHERAL
     Dosage: UNK
  7. LYRICA [Suspect]
     Active Substance: PREGABALIN
     Indication: AUDITORY DISORDER
  8. TRAMADOL HCL [Suspect]
     Active Substance: TRAMADOL HYDROCHLORIDE
     Indication: PAIN
     Dosage: 100 MG, THRICE DAILY
  9. LYRICA [Suspect]
     Active Substance: PREGABALIN
     Indication: NEUROPATHY PERIPHERAL
  10. NEURONTIN [Suspect]
     Active Substance: GABAPENTIN
     Indication: AUDITORY DISORDER

REACTIONS (17)
  - Hypoaesthesia [Unknown]
  - Neuropathy peripheral [Unknown]
  - Anger [Unknown]
  - Asthenia [Unknown]
  - Pain in extremity [Unknown]
  - Gait disturbance [Unknown]
  - Nerve injury [Unknown]
  - Therapeutic product effect incomplete [Unknown]
  - Withdrawal syndrome [Unknown]
  - Speech disorder [Unknown]
  - Nocturia [Unknown]
  - Suicidal ideation [Unknown]
  - Pain [Unknown]
  - Limb discomfort [Unknown]
  - Deafness [Unknown]
  - Auditory disorder [Unknown]
  - Fatigue [Unknown]
